FAERS Safety Report 8445300-3 (Version None)
Quarter: 2012Q2

REPORT INFORMATION
  Report Type: 
  Country: None (occurrence: None)
  Receive Date: 20120323
  Receipt Date: 20110928
  Transmission Date: 20120825
  Serious: Yes (Hospitalization, Other)
  Sender: FDA-Public Use
  Company Number: 163-21880-11093805

PATIENT
  Age: 80 Year
  Sex: Male

DRUGS (16)
  1. NITROSTAT [Concomitant]
  2. REVLIMID [Suspect]
     Indication: MULTIPLE MYELOMA
     Dosage: 25 MG, 1 IN 1 D, PO; 10 MG, 1 IN 1 D, PO; 10 MG, 1 IN 1 D, PO
     Route: 048
     Dates: start: 20110610
  3. REVLIMID [Suspect]
     Indication: MULTIPLE MYELOMA
     Dosage: 25 MG, 1 IN 1 D, PO; 10 MG, 1 IN 1 D, PO; 10 MG, 1 IN 1 D, PO
     Route: 048
     Dates: start: 20110201
  4. REVLIMID [Suspect]
     Indication: MULTIPLE MYELOMA
     Dosage: 25 MG, 1 IN 1 D, PO; 10 MG, 1 IN 1 D, PO; 10 MG, 1 IN 1 D, PO
     Route: 048
     Dates: start: 20090201
  5. AMLODIPINE BESYLATE [Concomitant]
  6. ENALAPRIL MALEATE [Concomitant]
  7. DEXAMETHASONE [Concomitant]
  8. ALPRAZOLAM [Concomitant]
  9. TEMAZEPAM [Concomitant]
  10. POLYETHYLENE GLYCOL [Concomitant]
  11. ALLOPURINOL [Concomitant]
  12. PLAVIX [Concomitant]
  13. SIMVASTATIN [Concomitant]
  14. DOXAZOSIN MESYLATE [Concomitant]
  15. MIRTAZAPINE [Concomitant]
  16. NEXIUM [Concomitant]

REACTIONS (1)
  - MYOCARDIAL INFARCTION [None]
